FAERS Safety Report 4393211-5 (Version None)
Quarter: 2004Q3

REPORT INFORMATION
  Report Type: 
  Country: None (occurrence: None)
  Receive Date: 20040702
  Receipt Date: 20040625
  Transmission Date: 20050211
  Serious: Yes (Death)
  Sender: FDA-Public Use
  Company Number: 2004AP02162

PATIENT
  Age: 76 Year
  Sex: Male

DRUGS (13)
  1. IRESSA [Suspect]
     Indication: LUNG ADENOCARCINOMA
     Dosage: 250 MG DAILY PO
     Route: 048
     Dates: start: 20020727
  2. GASTER D [Concomitant]
  3. RIZE [Concomitant]
  4. ATARAX [Concomitant]
  5. HEAVY MAGNESIUM [Concomitant]
  6. NO MATCH [Concomitant]
  7. THEOLONG [Concomitant]
  8. PERDIPINE-LA [Concomitant]
  9. KERATINAMIN [Concomitant]
  10. RINDERON-VG [Concomitant]
  11. SATOSALBE [Concomitant]
  12. CARBOPLATIN [Concomitant]
  13. PACLITAXEL [Concomitant]

REACTIONS (13)
  - ACUTE MYOCARDIAL INFARCTION [None]
  - ARTERIOSCLEROSIS [None]
  - CARDIAC DISORDER [None]
  - CARDIO-RESPIRATORY ARREST [None]
  - CONDUCTION DISORDER [None]
  - CORONARY ARTERY STENOSIS [None]
  - DECREASED APPETITE [None]
  - ICHTHYOSIS ACQUIRED [None]
  - MALAISE [None]
  - METASTASES TO CENTRAL NERVOUS SYSTEM [None]
  - PAIN [None]
  - RASH [None]
  - SCAR [None]
